FAERS Safety Report 17311733 (Version 1)
Quarter: 2020Q1

REPORT INFORMATION
  Report Type: Spontaneous
  Country: NL (occurrence: NL)
  Receive Date: 20200123
  Receipt Date: 20200123
  Transmission Date: 20200409
  Serious: Yes (Other)
  Sender: FDA-Public Use
  Company Number: NL-009507513-1908NLD010014

PATIENT
  Sex: Male

DRUGS (3)
  1. SINEMET [Suspect]
     Active Substance: CARBIDOPA\LEVODOPA
     Dosage: UNK
     Route: 048
  2. SINEMET [Suspect]
     Active Substance: CARBIDOPA\LEVODOPA
     Dosage: 24 TABLETS TO 35 TABLETS PER DAY OF SINEMET  62,5 MG PER DAY
     Route: 048
  3. SINEMET CR [Suspect]
     Active Substance: CARBIDOPA\LEVODOPA
     Route: 048

REACTIONS (6)
  - Incorrect dosage administered [Unknown]
  - Overdose [Unknown]
  - Movement disorder [Unknown]
  - Product availability issue [Unknown]
  - Disease progression [Unknown]
  - Drug ineffective [Unknown]
